FAERS Safety Report 12409442 (Version 1)
Quarter: 2016Q2

REPORT INFORMATION
  Report Type: Report from Study
  Country: US (occurrence: US)
  Receive Date: 20160526
  Receipt Date: 20160526
  Transmission Date: 20160815
  Serious: Yes (Hospitalization)
  Sender: FDA-Public Use
  Company Number: US-ASTRAZENECA-2016SE54267

PATIENT
  Age: 24593 Day
  Sex: Female
  Weight: 61.7 kg

DRUGS (8)
  1. GLIMEPIRIDE. [Concomitant]
     Active Substance: GLIMEPIRIDE
     Dates: end: 201410
  2. INSULIN [Concomitant]
     Active Substance: INSULIN NOS
  3. VICTOZA [Concomitant]
     Active Substance: LIRAGLUTIDE
     Indication: DIABETES MELLITUS
     Dates: end: 201601
  4. FARXIGA [Suspect]
     Active Substance: DAPAGLIFLOZIN PROPANEDIOL
     Indication: TYPE 2 DIABETES MELLITUS
     Dosage: UNKNOWN
     Route: 048
     Dates: start: 201410, end: 201410
  5. LOVASTATIN. [Concomitant]
     Active Substance: LOVASTATIN
     Indication: BLOOD CHOLESTEROL ABNORMAL
     Route: 048
  6. GLIPIZIDE XL [Concomitant]
     Active Substance: GLIPIZIDE
     Indication: DIABETES MELLITUS
     Route: 048
     Dates: start: 201601
  7. METFORMIN [Concomitant]
     Active Substance: METFORMIN HYDROCHLORIDE
     Indication: DIABETES MELLITUS
     Route: 048
     Dates: start: 201601
  8. DIFLUCAN [Suspect]
     Active Substance: FLUCONAZOLE
     Route: 065
     Dates: start: 201508

REACTIONS (14)
  - Oropharyngeal pain [Unknown]
  - Diarrhoea [Unknown]
  - Dehydration [Unknown]
  - Meniscus injury [Unknown]
  - Blood glucose increased [Unknown]
  - Nausea [Unknown]
  - Sensory disturbance [Unknown]
  - Thirst [Unknown]
  - Abdominal discomfort [Unknown]
  - Therapy cessation [Unknown]
  - Muscle spasticity [Unknown]
  - Fungal infection [Unknown]
  - Oral fungal infection [Unknown]
  - Glycosylated haemoglobin increased [Unknown]

NARRATIVE: CASE EVENT DATE: 201508
